FAERS Safety Report 12796868 (Version 1)
Quarter: 2016Q3

REPORT INFORMATION
  Report Type: Spontaneous
  Country: US (occurrence: US)
  Receive Date: 20160929
  Receipt Date: 20160929
  Transmission Date: 20161109
  Serious: Yes (Other)
  Sender: FDA-Public Use
  Company Number: None

PATIENT
  Age: 94 Year
  Sex: Male
  Weight: 56.8 kg

DRUGS (1)
  1. HALOPERIDOL. [Suspect]
     Active Substance: HALOPERIDOL
     Dates: start: 20160526, end: 20160526

REACTIONS (5)
  - Acute kidney injury [None]
  - Septic shock [None]
  - Cardiac arrest [None]
  - Ventricular tachycardia [None]
  - Pneumonia [None]

NARRATIVE: CASE EVENT DATE: 20160526
